FAERS Safety Report 7303000-7 (Version None)
Quarter: 2011Q1

REPORT INFORMATION
  Report Type: 
  Country: None (occurrence: None)
  Receive Date: 20110221
  Receipt Date: 20110210
  Transmission Date: 20110831
  Serious: Yes (Hospitalization)
  Sender: FDA-Public Use
  Company Number: NL-BAXTER-2011BH002857

PATIENT
  Age: 51 Year
  Sex: Female

DRUGS (10)
  1. GAMMAGARD LIQUID [Suspect]
     Route: 042
     Dates: start: 20110201, end: 20110201
  2. GAMMAGARD LIQUID [Suspect]
     Route: 042
     Dates: start: 20110201, end: 20110201
  3. GAMMAGARD LIQUID [Suspect]
     Route: 042
     Dates: start: 20110201, end: 20110201
  4. CINNARIZINE [Concomitant]
  5. FOSAMAX [Concomitant]
  6. GAMMAGARD LIQUID [Suspect]
     Indication: MULTIPLE SCLEROSIS
     Route: 042
     Dates: start: 20090423
  7. DOMPERIDONE [Concomitant]
  8. GAMMAGARD LIQUID [Suspect]
     Route: 042
     Dates: start: 20110201, end: 20110201
  9. GAMMAGARD LIQUID [Suspect]
     Indication: OFF LABEL USE
     Route: 042
     Dates: start: 20090423
  10. ACETYLSALICYLIC ACID [Concomitant]
     Indication: CARDIAC DISORDER

REACTIONS (4)
  - INFLUENZA [None]
  - DIARRHOEA [None]
  - VOMITING [None]
  - CHILLS [None]
